FAERS Safety Report 12654606 (Version 1)
Quarter: 2016Q3

REPORT INFORMATION
  Report Type: Spontaneous
  Country: US (occurrence: None)
  Receive Date: 20160815
  Receipt Date: 20160815
  Transmission Date: 20161109
  Serious: No
  Sender: FDA-Public Use
  Company Number: None

PATIENT
  Age: 11 Month
  Sex: Female
  Weight: 11.5 kg

DRUGS (4)
  1. MOTRIN CHILDREN [Concomitant]
     Active Substance: IBUPROFEN
  2. HISTEX PD DROPS [Suspect]
     Active Substance: TRIPROLIDINE HYDROCHLORIDE
     Indication: NASOPHARYNGITIS
     Route: 048
     Dates: start: 20160729, end: 20160730
  3. MAX STRENGTH DESITIN [Concomitant]
  4. HISTEX PD DROPS [Suspect]
     Active Substance: TRIPROLIDINE HYDROCHLORIDE
     Indication: COUGH
     Route: 048
     Dates: start: 20160729, end: 20160730

REACTIONS (4)
  - Drug administered to patient of inappropriate age [None]
  - Dermatitis diaper [None]
  - Diarrhoea [None]
  - Blister [None]

NARRATIVE: CASE EVENT DATE: 20160731
